FAERS Safety Report 24557247 (Version 1)
Quarter: 2024Q4

REPORT INFORMATION
  Report Type: Report from Study
  Country: CA (occurrence: CA)
  Receive Date: 20241028
  Receipt Date: 20241028
  Transmission Date: 20250115
  Serious: Yes (Other)
  Sender: PFIZER
  Company Number: CA-PFIZER INC-202400286749

PATIENT
  Age: 66 Year
  Sex: Female

DRUGS (10)
  1. RITUXIMAB [Suspect]
     Active Substance: RITUXIMAB
     Indication: Neuromyelitis optica spectrum disorder
     Dosage: 500 MG, EVERY 6 MONTHS
     Route: 042
  2. ACETAMINOPHEN [Concomitant]
     Active Substance: ACETAMINOPHEN
     Indication: Premedication
     Dosage: 650 MG
     Route: 048
  3. ATORVASTATIN [Concomitant]
     Active Substance: ATORVASTATIN
     Route: 048
  4. DIPHENHYDRAMINE [Concomitant]
     Active Substance: DIPHENHYDRAMINE
     Indication: Premedication
     Dosage: 50 MG
     Route: 048
  5. FUROSEMIDE [Concomitant]
     Active Substance: FUROSEMIDE
     Route: 065
  6. GABAPENTIN [Concomitant]
     Active Substance: GABAPENTIN
  7. GLICLAZIDE [Concomitant]
     Active Substance: GLICLAZIDE
  8. METFORMIN [Concomitant]
     Active Substance: METFORMIN HYDROCHLORIDE
     Route: 065
  9. METHYLPREDNISOLONE [Concomitant]
     Active Substance: METHYLPREDNISOLONE
     Indication: Premedication
     Dosage: 100 MG
     Route: 042
  10. PREDNISONE [Concomitant]
     Active Substance: PREDNISONE

REACTIONS (12)
  - Infusion related reaction [Recovered/Resolved]
  - Atrophy [Recovered/Resolved]
  - Cerebellar infarction [Recovered/Resolved]
  - Cerebral disorder [Recovered/Resolved]
  - Cerebral ventricle dilatation [Recovered/Resolved]
  - Demyelination [Recovered/Resolved]
  - Ischaemia [Recovered/Resolved]
  - Myelitis [Recovered/Resolved]
  - Paraesthesia [Recovered/Resolved]
  - Intentional product use issue [Recovered/Resolved]
  - Off label use [Recovered/Resolved]
  - Off label use [Unknown]
